FAERS Safety Report 25927463 (Version 2)
Quarter: 2025Q4

REPORT INFORMATION
  Report Type: Report from Study
  Country: EU (occurrence: EU)
  Receive Date: 20251015
  Receipt Date: 20251019
  Transmission Date: 20260118
  Serious: Yes (Hospitalization)
  Sender: ABBVIE
  Company Number: EU-ABBVIE-6503006

PATIENT
  Age: 78 Year
  Sex: Male

DRUGS (6)
  1. VYALEV [Suspect]
     Active Substance: FOSCARBIDOPA\FOSLEVODOPA
     Indication: Parkinson^s disease
     Dosage: CR 0.29 ML/H; CR HIGH 0.31 ML/H; CR LOW 0.17 ML/H; ED 0.20 ML?LAST ADMIN DATE: 2025
     Route: 058
     Dates: start: 20250909
  2. VYALEV [Suspect]
     Active Substance: FOSCARBIDOPA\FOSLEVODOPA
     Dosage: CR 0.30 ML/H; CR HIGH 0.32 ML/H; CR LOW 0.18 ML/H; ED 0.25 ML ?FIRST ADMIN DATE: 2025
     Route: 058
  3. PRAMIPEXOLE [Concomitant]
     Active Substance: PRAMIPEXOLE
     Indication: Parkinson^s disease
     Dosage: SIFROL RET. 0.26MG
     Dates: end: 20250917
  4. MIRABEGRON [Concomitant]
     Active Substance: MIRABEGRON
     Indication: Product used for unknown indication
     Dosage: BETMIGA RET 50MG
  5. ASCORBIC ACID\CALCIUM PHOSPHATE\CHOLECALCIFEROL\CITRIC ACID MONOHYDRAT [Concomitant]
     Active Substance: ASCORBIC ACID\CALCIUM PHOSPHATE\CHOLECALCIFEROL\CITRIC ACID MONOHYDRATE
     Indication: Product used for unknown indication
     Dosage: CALCIDURAN 500MG/800IU
  6. CLOZAPINE [Concomitant]
     Active Substance: CLOZAPINE
     Indication: Product used for unknown indication
     Dosage: LEPONEX 25MG

REACTIONS (5)
  - Endotracheal intubation [Not Recovered/Not Resolved]
  - Infection [Recovering/Resolving]
  - Somnolence [Not Recovered/Not Resolved]
  - General physical health deterioration [Recovering/Resolving]
  - Hypokinesia [Recovered/Resolved]

NARRATIVE: CASE EVENT DATE: 20250101
